FAERS Safety Report 21968915 (Version 1)
Quarter: 2023Q1

REPORT INFORMATION
  Report Type: Spontaneous
  Country: GB (occurrence: GB)
  Receive Date: 20230208
  Receipt Date: 20230208
  Transmission Date: 20230418
  Serious: Yes (Death, Other)
  Sender: FDA-Public Use
  Company Number: None

PATIENT
  Age: 42 Year
  Sex: Female

DRUGS (29)
  1. SIMVASTATIN [Suspect]
     Active Substance: SIMVASTATIN
     Indication: Product used for unknown indication
     Dosage: 20 MILLIGRAM, QD (AT BEDTIME)
     Route: 048
     Dates: start: 20221220, end: 20221222
  2. INSULIN HUMAN [Concomitant]
     Active Substance: INSULIN HUMAN
     Dosage: UNK (UNSCHEDULED100 UNITS/ML)
     Route: 058
     Dates: start: 20221220, end: 20221221
  3. INSULIN HUMAN [Concomitant]
     Active Substance: INSULIN HUMAN
     Dosage: 1 DOSAGE FORM, QH (50UNITS IN 50ML NACL 0.9 PERCENT)
     Route: 042
     Dates: start: 20221220
  4. CALCIUM CARBONATE\CHOLECALCIFEROL [Concomitant]
     Active Substance: CALCIUM CARBONATE\CHOLECALCIFEROL
     Dosage: 1 DOSAGE FORM, BID
     Route: 048
     Dates: start: 20221220
  5. ADIZEM [Concomitant]
     Active Substance: DILTIAZEM HYDROCHLORIDE
     Dosage: 90 MILLIGRAM, BID
     Route: 048
     Dates: start: 20221220
  6. ALFENTANIL [Concomitant]
     Active Substance: ALFENTANIL
     Dosage: 17 MILLILITER
     Route: 058
     Dates: start: 20221220
  7. DEXAMETHASONE [Concomitant]
     Active Substance: DEXAMETHASONE
     Dosage: 1 GTT DROPS, QID (LEFT EYE)
     Route: 065
     Dates: start: 20221220
  8. DOBUTAMINE [Concomitant]
     Active Substance: DOBUTAMINE HYDROCHLORIDE
     Dosage: 25 MILLILITER (CENTRAL)
     Route: 042
     Dates: start: 20221221
  9. DEXTROSE [Concomitant]
     Active Substance: DEXTROSE
     Dosage: 500 MILLILITER
     Route: 042
     Dates: start: 20221220
  10. KABIVEN [Concomitant]
     Active Substance: AMINO ACIDS\ANHYDROUS DEXTROSE\CALCIUM CHLORIDE\MAGNESIUM SULFATE HEPTAHYDRATE\POTASSIUM CHLORIDE\SO
     Dosage: 2566 MILLILITER (2,566 ML IV FOR 1 BAG(S))
     Route: 042
     Dates: start: 20221220, end: 20221221
  11. NOREPINEPHRINE [Concomitant]
     Active Substance: NOREPINEPHRINE
     Dosage: 50 MILLILITER (CENTRAL)
     Route: 042
     Dates: start: 20221221
  12. PRIVIGEN [Concomitant]
     Active Substance: HUMAN IMMUNOGLOBULIN G
     Dosage: 1 GRAM, QD
     Route: 042
     Dates: start: 20221221, end: 20221223
  13. TIMOLOL [Concomitant]
     Active Substance: TIMOLOL
     Dosage: 2 GTT DROPS, QD
     Route: 065
     Dates: start: 20221221
  14. TRIMOVATE [Concomitant]
     Active Substance: CLOBETASONE BUTYRATE\NYSTATIN\OXYTETRACYCLINE CALCIUM
     Dosage: 1 DOSAGE FORM, BID (1 APPLICATIONS)
     Route: 061
     Dates: start: 20221220
  15. AMOXICILLIN [Concomitant]
     Active Substance: AMOXICILLIN
     Indication: Lower respiratory tract infection
     Dosage: 500 MILLIGRAM, TID
     Route: 048
     Dates: start: 20221220
  16. APIXABAN [Concomitant]
     Active Substance: APIXABAN
     Indication: Atrial fibrillation
     Dosage: 2.5 MILLIGRAM, BID
     Route: 048
     Dates: start: 20221220
  17. CLONAZEPAM [Concomitant]
     Active Substance: CLONAZEPAM
     Dosage: 500 MICROGRAM, QD (AT BEDTIME)
     Route: 048
     Dates: start: 20221220
  18. DIAZEPAM [Concomitant]
     Active Substance: DIAZEPAM
     Dosage: 5 MEGABECQUEREL, QD (AT BEDTIME)
     Route: 048
     Dates: start: 20221220, end: 20221221
  19. DIAZEPAM [Concomitant]
     Active Substance: DIAZEPAM
     Dosage: 5 MILLIGRAM, QD (AT BEDTIME)
     Route: 048
     Dates: start: 20221221
  20. ENOXAPARIN [Concomitant]
     Active Substance: ENOXAPARIN
     Indication: Embolism venous
     Dosage: 40 MILLIGRAM, QD (EVERY EVENING AT 6PM)
     Route: 058
     Dates: start: 20221220
  21. IBUPROFEN [Concomitant]
     Active Substance: IBUPROFEN
     Dosage: 400 MILLIGRAM, TID
     Route: 048
     Dates: start: 20221220
  22. LEVOBUPIVACAINE [Concomitant]
     Active Substance: LEVOBUPIVACAINE
     Dosage: 200 MILLILITER
     Route: 008
     Dates: start: 20221220
  23. METFORMIN [Concomitant]
     Active Substance: METFORMIN HYDROCHLORIDE
     Dosage: 500 MILLIGRAM, BID (AT 8AM AND 6PM)
     Route: 048
     Dates: start: 20221221
  24. METFORMIN [Concomitant]
     Active Substance: METFORMIN HYDROCHLORIDE
     Dosage: 1000 MILLIGRAM, QD (AT MIDDAY)
     Route: 048
     Dates: start: 20221221
  25. MORPHINE SULFATE [Concomitant]
     Active Substance: MORPHINE SULFATE
     Dosage: 50 MILLILITER
     Route: 042
     Dates: start: 20221220
  26. PREDNISOLONE [Concomitant]
     Active Substance: PREDNISOLONE
     Dosage: 15 MILLIGRAM, QD (EVERY MORNING)
     Route: 048
     Dates: start: 20221222, end: 20221223
  27. ALBUTEROL [Concomitant]
     Active Substance: ALBUTEROL
     Dosage: 200 MICROGRAM, QD
     Route: 042
     Dates: start: 20221221
  28. VALPROATE SODIUM [Concomitant]
     Active Substance: VALPROATE SODIUM
     Dosage: 300 MILLIGRAM, BID
     Route: 048
     Dates: start: 20221220
  29. OXYGEN [Concomitant]
     Active Substance: OXYGEN
     Dosage: 100 L/MIN, AS NECESSARY
     Route: 055
     Dates: start: 20221220

REACTIONS (2)
  - Death [Fatal]
  - Myalgia [Not Recovered/Not Resolved]
